FAERS Safety Report 21417125 (Version 2)
Quarter: 2022Q4

REPORT INFORMATION
  Report Type: Spontaneous
  Country: DK (occurrence: DK)
  Receive Date: 20221006
  Receipt Date: 20221019
  Transmission Date: 20230113
  Serious: Yes (Other)
  Sender: FDA-Public Use
  Company Number: DK-TEVA-2022-DK-2079771

PATIENT
  Age: 27 Year
  Sex: Male

DRUGS (1)
  1. PREDNISOLONE [Suspect]
     Active Substance: PREDNISOLONE
     Indication: Inflammation
     Dosage: 25 MG/DAY (2.5 MG/KG)
     Route: 065

REACTIONS (5)
  - Streptococcal infection [Recovering/Resolving]
  - Pneumocystis jirovecii infection [Recovered/Resolved]
  - Achromobacter infection [Recovering/Resolving]
  - Pseudomonas infection [Recovering/Resolving]
  - Pneumonia [Recovering/Resolving]
